FAERS Safety Report 5786122-1 (Version None)
Quarter: 2008Q2

REPORT INFORMATION
  Report Type: 
  Country: None (occurrence: None)
  Receive Date: 20080624
  Receipt Date: 20080620
  Transmission Date: 20081010
  Serious: Yes (Death, Life-Threatening, Disabling)
  Sender: FDA-Public Use
  Company Number: GB-ASTRAZENECA-2008GB01153

PATIENT
  Age: 86 Year
  Sex: Female

DRUGS (3)
  1. QUETIAPINE FUMARATE [Suspect]
     Indication: AGITATION
     Route: 048
     Dates: start: 20080330, end: 20080408
  2. QUETIAPINE FUMARATE [Suspect]
     Indication: PSYCHOTIC DISORDER
     Route: 048
     Dates: start: 20080330, end: 20080408
  3. CITALOPRAM HYDROBROMIDE [Suspect]
     Indication: DEPRESSION
     Route: 048
     Dates: start: 20080326, end: 20080414

REACTIONS (3)
  - CEREBROVASCULAR ACCIDENT [None]
  - EXTRAPYRAMIDAL DISORDER [None]
  - HYPONATRAEMIA [None]
